FAERS Safety Report 7305144-2 (Version None)
Quarter: 2011Q1

REPORT INFORMATION
  Report Type: 
  Country: None (occurrence: None)
  Receive Date: 20110222
  Receipt Date: 20110126
  Transmission Date: 20110831
  Serious: No
  Sender: FDA-Public Use
  Company Number: US-B.I. PHARMACEUTICALS,INC./RIDGEFIELD-2011-BP-02008BP

PATIENT
  Sex: Male

DRUGS (7)
  1. DILTIAZEM [Concomitant]
     Indication: DIABETES MELLITUS
     Dosage: 180 MG
  2. LIPITOR [Concomitant]
     Indication: BLOOD CHOLESTEROL INCREASED
     Dosage: 80 MG
  3. ZETIA [Concomitant]
     Indication: BLOOD CHOLESTEROL INCREASED
     Dosage: 10 MG
  4. PRADAXA [Suspect]
     Indication: ATRIAL FIBRILLATION
     Dosage: 300 MG
     Route: 048
     Dates: start: 20110101
  5. LANOXIN [Concomitant]
     Indication: ATRIAL FIBRILLATION
     Dosage: 0.25
     Route: 048
  6. ALTACE [Concomitant]
     Indication: HYPERTENSION
     Dosage: 10 MG
  7. BYETTA [Concomitant]
     Indication: DIABETES MELLITUS
     Dosage: INJ

REACTIONS (7)
  - BLOOD URINE PRESENT [None]
  - ABDOMINAL PAIN UPPER [None]
  - ABDOMINAL DISCOMFORT [None]
  - HAEMORRHOIDAL HAEMORRHAGE [None]
  - BLOOD GLUCOSE INCREASED [None]
  - CHROMATURIA [None]
  - OCCULT BLOOD POSITIVE [None]
